FAERS Safety Report 6573754-6 (Version None)
Quarter: 2010Q1

REPORT INFORMATION
  Report Type: 
  Country: None (occurrence: None)
  Receive Date: 20100208
  Receipt Date: 20100201
  Transmission Date: 20100710
  Serious: Yes (Hospitalization)
  Sender: FDA-Public Use
  Company Number: B0630425A

PATIENT
  Age: 70 Year
  Sex: Male

DRUGS (4)
  1. SEREVENT [Suspect]
     Indication: EMPHYSEMA
     Dosage: 100MCG TWICE PER DAY
     Route: 055
     Dates: start: 20091127
  2. SPIRIVA [Concomitant]
     Indication: EMPHYSEMA
     Dosage: 18MCG PER DAY
     Route: 055
     Dates: start: 20091127
  3. ASPIRIN [Concomitant]
     Route: 048
  4. BLOPRESS [Concomitant]
     Route: 048

REACTIONS (1)
  - ORGANISING PNEUMONIA [None]
